FAERS Safety Report 8114083-9 (Version None)
Quarter: 2012Q1

REPORT INFORMATION
  Report Type: 
  Country: None (occurrence: None)
  Receive Date: 20120203
  Receipt Date: 20111223
  Transmission Date: 20120608
  Serious: Yes (Hospitalization)
  Sender: FDA-Public Use
  Company Number: PHHO2011US021476

PATIENT
  Sex: Female

DRUGS (1)
  1. AFINITOR [Suspect]
     Indication: BLADDER CANCER STAGE 0, WITH CANCER IN SITU
     Dosage: UNK
     Dates: start: 20110621

REACTIONS (3)
  - HEPATOMEGALY [None]
  - LIVER FUNCTION TEST ABNORMAL [None]
  - ASCITES [None]
